FAERS Safety Report 8304799-3 (Version None)
Quarter: 2012Q2

REPORT INFORMATION
  Report Type: 
  Country: None (occurrence: None)
  Receive Date: 20120423
  Receipt Date: 20120413
  Transmission Date: 20120825
  Serious: Yes (Other)
  Sender: FDA-Public Use
  Company Number: AT-ROCHE-1058618

PATIENT
  Age: 77 Year
  Sex: Female

DRUGS (6)
  1. RANIBIZUMAB [Suspect]
     Route: 050
     Dates: start: 20101215
  2. RANIBIZUMAB [Suspect]
     Route: 050
     Dates: start: 20110526
  3. RANIBIZUMAB [Suspect]
     Indication: AGE-RELATED MACULAR DEGENERATION
     Route: 050
     Dates: start: 20101103
  4. RANIBIZUMAB [Suspect]
     Route: 050
     Dates: start: 20110914
  5. RANIBIZUMAB [Suspect]
     Route: 050
     Dates: start: 20110126
  6. RANIBIZUMAB [Suspect]
     Route: 050
     Dates: start: 20110706

REACTIONS (2)
  - RETINAL OEDEMA [None]
  - OEDEMA [None]
